FAERS Safety Report 6555683-7 (Version None)
Quarter: 2010Q1

REPORT INFORMATION
  Report Type: 
  Country: None (occurrence: None)
  Receive Date: 20100128
  Receipt Date: 20100122
  Transmission Date: 20100710
  Serious: Yes (Hospitalization)
  Sender: FDA-Public Use
  Company Number: PHHO2010DE00836

PATIENT
  Sex: Female

DRUGS (1)
  1. EXELON [Suspect]
     Indication: DEMENTIA
     Dosage: 10CM2/18 MG
     Dates: start: 20081211

REACTIONS (3)
  - ACUTE PSYCHOSIS [None]
  - DELUSION [None]
  - HALLUCINATION [None]
